FAERS Safety Report 7106776-7 (Version None)
Quarter: 2010Q4

REPORT INFORMATION
  Report Type: 
  Country: None (occurrence: None)
  Receive Date: 20101116
  Receipt Date: 20101112
  Transmission Date: 20110411
  Serious: Yes (Other)
  Sender: FDA-Public Use
  Company Number: DE-MERCK-1011DEU00077

PATIENT
  Sex: Male

DRUGS (2)
  1. ISENTRESS [Suspect]
     Route: 048
  2. EMTRICITABINE AND TENOFOVIR DISOPROXIL FUMARATE [Concomitant]
     Route: 048

REACTIONS (1)
  - OSTEONECROSIS [None]
